FAERS Safety Report 22132986 (Version 1)
Quarter: 2023Q1

REPORT INFORMATION
  Report Type: Report from Study
  Country: US (occurrence: US)
  Receive Date: 20230323
  Receipt Date: 20230323
  Transmission Date: 20230417
  Serious: Yes (Death, Other)
  Sender: FDA-Public Use
  Company Number: US-ACADIA PHARMACEUTICALS INC.-ACA-2023-PIM-001074

PATIENT
  Sex: Male

DRUGS (20)
  1. NUPLAZID [Suspect]
     Active Substance: PIMAVANSERIN TARTRATE
     Indication: Parkinson^s disease
     Dosage: 34 MILLIGRAM, QD
     Route: 048
     Dates: start: 20230124, end: 20230303
  2. PROVENTIL HFA [SALBUTAMOL] [Concomitant]
     Indication: Wheezing
     Dosage: 2 PUFF, QID (INTO THE LUNGS; AS NEEDED)
     Dates: start: 20230207
  3. PROVENTIL HFA [SALBUTAMOL] [Concomitant]
     Indication: Cough
  4. VENTOLIN HFA [Concomitant]
     Active Substance: ALBUTEROL SULFATE
     Indication: Wheezing
     Dosage: 2 PUFF, QID (INTO THE LUNGS; AS NEEDED)
     Dates: start: 20230207
  5. VENTOLIN HFA [Concomitant]
     Active Substance: ALBUTEROL SULFATE
     Indication: Cough
  6. ALBUTEROL SULFATE [Concomitant]
     Active Substance: ALBUTEROL SULFATE
     Indication: Wheezing
     Dosage: 2 PUFF, QID (INTO THE LUNGS; AS NEEDED)
     Dates: start: 20230207
  7. ALBUTEROL SULFATE [Concomitant]
     Active Substance: ALBUTEROL SULFATE
     Indication: Cough
  8. VITAMIN C [Concomitant]
     Active Substance: ASCORBIC ACID
     Dosage: 500 MILLIGRAM, QD (EVERY MORNING)
     Route: 048
  9. CALCIUM CARBONATE\CHOLECALCIFEROL [Concomitant]
     Active Substance: CALCIUM CARBONATE\CHOLECALCIFEROL
     Dosage: 1 TABLET, QD (1000 MG-20 MCG (800 UNIT))
     Route: 048
     Dates: start: 20230206
  10. SINEMET [Concomitant]
     Active Substance: CARBIDOPA\LEVODOPA
     Dosage: 25-100 MG, TAKE 2 TABS AT 7-8 AM; 1.5 AT NOON, 1 AT 5 PM, 1 AT 9-10 PM; OPTIONAL 1 TABLET IN MIDDLE
     Dates: start: 20230206
  11. NORTHERA [Concomitant]
     Active Substance: DROXIDOPA
     Dosage: 3 CAPSULES AM, 2 CAPSULES AT 12P, 6P
     Dates: start: 20230203
  12. PEPCID [Concomitant]
     Active Substance: FAMOTIDINE
     Dosage: 20 MILLIGRAM, QD (NIGHTLY)
     Route: 048
  13. FERROUS SULFATE [Concomitant]
     Active Substance: FERROUS SULFATE
     Dosage: 1 TABLET, QD (325 MG (65 MG FE), WITH BREAKFAST)
     Route: 048
     Dates: start: 20230223
  14. FLORINEF ACETATE [Concomitant]
     Active Substance: FLUDROCORTISONE ACETATE
     Dosage: 3 TABLET, QD (0.3 MG)
     Route: 048
     Dates: start: 20230215
  15. FLUOXETINE [Concomitant]
     Active Substance: FLUOXETINE HYDROCHLORIDE
     Dosage: 30 MILLIGRAM, QD
     Route: 048
     Dates: start: 20230110
  16. MELATONIN [Concomitant]
     Active Substance: MELATONIN
     Indication: Insomnia
     Dosage: 1 TABLET, QD (10 MG TOTAL, NIGHTLY AS NEEDED)
     Route: 048
     Dates: start: 20230217
  17. OXYGEN [Concomitant]
     Active Substance: OXYGEN
     Indication: Hypoxia
     Dosage: INHALE 2 L/MIN INTO THE LUNGS CONTINUOUSLY, PATIENT TAKING NIGHTLY
     Dates: start: 20230116
  18. PRILOSEC [Concomitant]
     Active Substance: OMEPRAZOLE MAGNESIUM
     Dosage: 40 MILLIGRAM, QD (1 CAPSULE EVERY MORNING)
     Route: 048
     Dates: start: 20230216
  19. MIRALAX [Concomitant]
     Active Substance: POLYETHYLENE GLYCOL 3350
     Dosage: 17 GRAM, QD
     Route: 048
  20. RAPAFLO [Concomitant]
     Active Substance: SILODOSIN
     Dosage: 4 MILLIGRAM, QD (1 CAPSULE, PATIENT TAKING AT BEDTIME)
     Route: 048
     Dates: start: 20220613

REACTIONS (1)
  - Parkinson^s disease [Fatal]
